FAERS Safety Report 14164870 (Version 1)
Quarter: 2017Q4

REPORT INFORMATION
  Report Type: Report from Study
  Country: BR (occurrence: BR)
  Receive Date: 20171107
  Receipt Date: 20171107
  Transmission Date: 20180321
  Serious: Yes (Other)
  Sender: FDA-Public Use
  Company Number: PHHY2017BR163431

PATIENT
  Sex: Female
  Weight: 65 kg

DRUGS (1)
  1. EXELON PATCH [Suspect]
     Active Substance: RIVASTIGMINE
     Indication: DELIRIUM
     Dosage: 4.6 MG, QD PATCH 5 (CM2)
     Route: 062

REACTIONS (9)
  - Decreased activity [Not Recovered/Not Resolved]
  - Ill-defined disorder [Not Recovered/Not Resolved]
  - Gait inability [Not Recovered/Not Resolved]
  - Apathy [Not Recovered/Not Resolved]
  - Hypotension [Not Recovered/Not Resolved]
  - Delirium [Not Recovered/Not Resolved]
  - Eating disorder [Not Recovered/Not Resolved]
  - Limb discomfort [Not Recovered/Not Resolved]
  - Condition aggravated [Not Recovered/Not Resolved]
